FAERS Safety Report 26087182 (Version 1)
Quarter: 2025Q4

REPORT INFORMATION
  Report Type: Spontaneous
  Country: US (occurrence: US)
  Receive Date: 20251125
  Receipt Date: 20251125
  Transmission Date: 20260118
  Serious: Yes (Other)
  Sender: MACLEODS
  Company Number: US-MACLEODS PHARMA-MAC2025056518

PATIENT

DRUGS (5)
  1. PANTOPRAZOLE [Suspect]
     Active Substance: PANTOPRAZOLE
     Indication: Stress ulcer
     Route: 042
  2. PANTOPRAZOLE [Suspect]
     Active Substance: PANTOPRAZOLE
     Indication: Prophylaxis
  3. PANTOPRAZOLE [Suspect]
     Active Substance: PANTOPRAZOLE
     Route: 042
  4. HEPARIN [Concomitant]
     Active Substance: HEPARIN SODIUM
     Indication: Product used for unknown indication
     Route: 065
  5. MILRINONE [Concomitant]
     Active Substance: MILRINONE
     Indication: Product used for unknown indication
     Route: 065

REACTIONS (1)
  - Thrombocytopenia [Recovered/Resolved]
